FAERS Safety Report 22363186 (Version 1)
Quarter: 2023Q2

REPORT INFORMATION
  Report Type: Spontaneous
  Country: US (occurrence: US)
  Receive Date: 20230525
  Receipt Date: 20230525
  Transmission Date: 20230721
  Serious: No
  Sender: FDA-Public Use
  Company Number: US-UCBSA-2022042079

PATIENT
  Sex: Female
  Weight: 47.62 kg

DRUGS (1)
  1. CIMZIA [Suspect]
     Active Substance: CERTOLIZUMAB PEGOL
     Indication: Rheumatoid arthritis
     Dosage: 200 MILLIGRAM, EV 2 WEEKS(QOW)
     Route: 058
     Dates: start: 202108

REACTIONS (5)
  - Fatigue [Unknown]
  - Pain [Unknown]
  - Nausea [Unknown]
  - Gastroenteritis viral [Unknown]
  - Pruritus [Not Recovered/Not Resolved]
